FAERS Safety Report 9086277 (Version 1)
Quarter: 2013Q1

REPORT INFORMATION
  Report Type: Report from Study
  Country: US (occurrence: US)
  Receive Date: 20130131
  Receipt Date: 20130131
  Transmission Date: 20140127
  Serious: No
  Sender: FDA-Public Use
  Company Number: US-ABBOTT-12P-163-0993741-00

PATIENT
  Age: 45 Year
  Sex: Male

DRUGS (3)
  1. HUMIRA [Suspect]
     Indication: PSORIASIS
  2. JANUMET [Concomitant]
     Indication: DIABETES MELLITUS
     Route: 048
  3. FORTESTA [Concomitant]
     Indication: BLOOD TESTOSTERONE DECREASED
     Dosage: 2 MG DAILY, TESTOSTERONE TOPICAL GEL APPLIED TO THIGHS

REACTIONS (2)
  - Vitamin D decreased [Recovered/Resolved]
  - Injection site pain [Recovered/Resolved]
